FAERS Safety Report 15253390 (Version 17)
Quarter: 2021Q4

REPORT INFORMATION
  Report Type: Report from Study
  Country: NL (occurrence: NL)
  Receive Date: 20180808
  Receipt Date: 20211222
  Transmission Date: 20220303
  Serious: Yes (Disabling, Other)
  Sender: FDA-Public Use
  Company Number: NL-ABBVIE-17K-114-2166205-00

PATIENT
  Age: 67 Year
  Sex: Male
  Weight: 70 kg

DRUGS (10)
  1. CARBIDOPA\LEVODOPA [Suspect]
     Active Substance: CARBIDOPA\LEVODOPA
     Indication: Parkinson^s disease
     Dosage: MD: 11.0ML, CD: 4.2ML/H, ED: 3.5ML
     Route: 050
     Dates: start: 20171106
  2. CARBIDOPA\LEVODOPA [Suspect]
     Active Substance: CARBIDOPA\LEVODOPA
     Dosage: CONTINUOUS DOSE 4.4ML
     Route: 050
  3. CARBIDOPA\LEVODOPA [Suspect]
     Active Substance: CARBIDOPA\LEVODOPA
     Dosage: MD 13 ML?CD 4.6 ML?ED 3.5 ML
     Route: 050
  4. CARBIDOPA\LEVODOPA [Suspect]
     Active Substance: CARBIDOPA\LEVODOPA
     Dosage: CONTINUOUS DOSE 4.4 ML
     Route: 050
  5. CARBIDOPA\LEVODOPA [Suspect]
     Active Substance: CARBIDOPA\LEVODOPA
     Dosage: MD: 12.0, CD: 4.4, ED: 3.5
     Route: 050
  6. CARBIDOPA\LEVODOPA [Suspect]
     Active Substance: CARBIDOPA\LEVODOPA
     Dosage: MD: 11.0, CD: 4.3, ED: 3.5
     Route: 050
  7. CARBIDOPA\LEVODOPA [Suspect]
     Active Substance: CARBIDOPA\LEVODOPA
     Dosage: MD: 11.0ML CD: 4.2ML/HOUR, ED: 3.5ML
     Route: 050
  8. CARBIDOPA\LEVODOPA [Concomitant]
     Active Substance: CARBIDOPA\LEVODOPA
     Indication: Product used for unknown indication
     Dosage: ONCE DAILY AT NIGHT
  9. QUETIAPINE [Concomitant]
     Active Substance: QUETIAPINE
     Indication: Product used for unknown indication
  10. POLYETHYLENE GLYCOL 3350\POTASSIUM CHLORIDE\SODIUM BICARBONATE\SODIUM [Concomitant]
     Active Substance: POLYETHYLENE GLYCOL 3350\POTASSIUM CHLORIDE\SODIUM BICARBONATE\SODIUM CHLORIDE
     Indication: Abnormal faeces

REACTIONS (44)
  - Retinal detachment [Not Recovered/Not Resolved]
  - Cataract [Unknown]
  - Hip fracture [Not Recovered/Not Resolved]
  - Tension [Not Recovered/Not Resolved]
  - Fibroma [Unknown]
  - Stress [Not Recovered/Not Resolved]
  - Nocturia [Not Recovered/Not Resolved]
  - Restlessness [Not Recovered/Not Resolved]
  - Arthropathy [Recovering/Resolving]
  - Mobility decreased [Recovered/Resolved]
  - Musculoskeletal stiffness [Not Recovered/Not Resolved]
  - Motor dysfunction [Recovered/Resolved]
  - Bradyphrenia [Not Recovered/Not Resolved]
  - Hyperphagia [Not Recovered/Not Resolved]
  - Infrequent bowel movements [Not Recovered/Not Resolved]
  - Apathy [Not Recovered/Not Resolved]
  - Fear of disease [Not Recovered/Not Resolved]
  - Memory impairment [Not Recovered/Not Resolved]
  - Abnormal behaviour [Not Recovered/Not Resolved]
  - Loss of personal independence in daily activities [Not Recovered/Not Resolved]
  - Abnormal dreams [Recovered/Resolved]
  - Abnormal dreams [Not Recovered/Not Resolved]
  - Weight decreased [Recovered/Resolved]
  - Impulsive behaviour [Not Recovered/Not Resolved]
  - Weight increased [Not Recovered/Not Resolved]
  - Dystonia [Not Recovered/Not Resolved]
  - Tremor [Not Recovered/Not Resolved]
  - Fatigue [Not Recovered/Not Resolved]
  - Headache [Not Recovered/Not Resolved]
  - Decreased appetite [Not Recovered/Not Resolved]
  - On and off phenomenon [Not Recovered/Not Resolved]
  - Dyskinesia [Recovering/Resolving]
  - Hallucination [Recovered/Resolved]
  - Dizziness [Not Recovered/Not Resolved]
  - Constipation [Recovered/Resolved]
  - Hallucination [Recovered/Resolved]
  - Freezing phenomenon [Not Recovered/Not Resolved]
  - Muscle rigidity [Not Recovered/Not Resolved]
  - Parkinson^s disease [Recovered/Resolved]
  - Hallucination [Recovered/Resolved]
  - Pain [Recovering/Resolving]
  - Muscle rigidity [Recovered/Resolved]
  - Device breakage [Unknown]
  - Device leakage [Unknown]

NARRATIVE: CASE EVENT DATE: 20171101
